FAERS Safety Report 8431741-7 (Version None)
Quarter: 2012Q2

REPORT INFORMATION
  Report Type: 
  Country: None (occurrence: None)
  Receive Date: 20120606
  Receipt Date: 20120523
  Transmission Date: 20120825
  Serious: Yes (Other)
  Sender: FDA-Public Use
  Company Number: 2011P1008775

PATIENT
  Age: 55 Year
  Sex: Female
  Weight: 65.7716 kg

DRUGS (9)
  1. ATIVAN [Concomitant]
  2. ACTIQ [Concomitant]
  3. KLOR-CON [Concomitant]
  4. LIPRAM [Concomitant]
  5. PHENERGAN [Concomitant]
  6. FENTANYL-75 [Suspect]
     Indication: RADIOTHERAPY
     Dosage: 2 PATCHES;Q72H;TDER
     Route: 062
     Dates: start: 20110901
  7. FENTANYL-75 [Suspect]
     Indication: PANCREATITIS CHRONIC
     Dosage: 2 PATCHES;Q72H;TDER
     Route: 062
     Dates: start: 20110901
  8. FENTANYL-75 [Suspect]
     Indication: OOPHORECTOMY
     Dosage: 2 PATCHES;Q72H;TDER
     Route: 062
     Dates: start: 20110901
  9. FENTANYL-75 [Suspect]
     Indication: PAIN
     Dosage: 2 PATCHES;Q72H;TDER
     Route: 062
     Dates: start: 20110901

REACTIONS (2)
  - SARCOIDOSIS [None]
  - TOOTH LOSS [None]
